FAERS Safety Report 9007971 (Version 1)
Quarter: 2013Q1

REPORT INFORMATION
  Report Type: Spontaneous
  Country: US (occurrence: US)
  Receive Date: 20130111
  Receipt Date: 20130111
  Transmission Date: 20140127
  Serious: Yes (Hospitalization, Other)
  Sender: FDA-Public Use
  Company Number: US-009507513-1012USA00802

PATIENT
  Age: 8 Year
  Sex: Male
  Weight: 21.77 kg

DRUGS (1)
  1. SINGULAIR [Suspect]
     Indication: MULTIPLE ALLERGIES
     Dosage: 5 MG, QD
     Route: 048
     Dates: start: 20090815, end: 20100315

REACTIONS (7)
  - Abnormal behaviour [Recovering/Resolving]
  - Epilepsy [Unknown]
  - Fear [Recovering/Resolving]
  - Mood swings [Recovering/Resolving]
  - Paralysis [Recovering/Resolving]
  - Restlessness [Recovering/Resolving]
  - Somnolence [Recovering/Resolving]
